FAERS Safety Report 9281845 (Version 3)
Quarter: 2013Q4

REPORT INFORMATION
  Report Type: Report from Study
  Country: BR (occurrence: BR)
  Receive Date: 20130510
  Receipt Date: 20131023
  Transmission Date: 20140711
  Serious: Yes (Hospitalization, Other)
  Sender: FDA-Public Use
  Company Number: BR-ROCHE-1222485

PATIENT
  Sex: Female
  Weight: 52 kg

DRUGS (6)
  1. XOLAIR [Suspect]
     Indication: ASTHMA
     Route: 065
     Dates: start: 20111219
  2. INSULIN [Concomitant]
     Route: 065
  3. SERETIDE [Concomitant]
     Route: 065
     Dates: start: 201008
  4. BEROTEC [Concomitant]
     Route: 065
  5. AEROLIN [Concomitant]
     Route: 065
  6. PRELONE [Concomitant]
     Route: 065
     Dates: start: 2010, end: 2012

REACTIONS (9)
  - Body temperature decreased [Recovered/Resolved]
  - Dyspnoea [Recovered/Resolved]
  - Cyanosis [Recovering/Resolving]
  - Asthma [Recovering/Resolving]
  - Blood glucose abnormal [Recovering/Resolving]
  - Abdominal distension [Recovered/Resolved]
  - Gait disturbance [Recovering/Resolving]
  - Lack of spontaneous speech [Recovering/Resolving]
  - Drug ineffective [Unknown]
